FAERS Safety Report 23949412 (Version 1)
Quarter: 2024Q2

REPORT INFORMATION
  Report Type: Spontaneous
  Country: PT (occurrence: PT)
  Receive Date: 20240607
  Receipt Date: 20240607
  Transmission Date: 20240716
  Serious: Yes (Hospitalization, Other)
  Sender: FDA-Public Use
  Company Number: PT-SUN PHARMACEUTICAL INDUSTRIES LTD-2024R1-450002

PATIENT
  Age: 57 Year
  Sex: Male

DRUGS (1)
  1. LITHIUM [Suspect]
     Active Substance: LITHIUM
     Indication: Mood swings
     Route: 065

REACTIONS (7)
  - Toxicity to various agents [Unknown]
  - Abnormal behaviour [Unknown]
  - Hypernatraemia [Unknown]
  - Pituitary tumour benign [Unknown]
  - Pituitary tumour benign [Unknown]
  - Fatigue [Unknown]
  - Agitation [Unknown]
